FAERS Safety Report 20840945 (Version 1)
Quarter: 2022Q2

REPORT INFORMATION
  Report Type: Spontaneous
  Country: US (occurrence: US)
  Receive Date: 20220517
  Receipt Date: 20220517
  Transmission Date: 20220721
  Serious: Yes (Other)
  Sender: FDA-Public Use
  Company Number: US-LUPIN PHARMACEUTICALS INC.-2022-07149

PATIENT
  Age: 22 Year
  Sex: Female

DRUGS (2)
  1. CEFTRIAXONE [Suspect]
     Active Substance: CEFTRIAXONE
     Indication: Pneumonia staphylococcal
     Dosage: UNK
     Route: 065
  2. VANCOMYCIN [Suspect]
     Active Substance: VANCOMYCIN
     Indication: Pneumonia staphylococcal
     Dosage: UNK
     Route: 065

REACTIONS (3)
  - Pulmonary vasculitis [Recovering/Resolving]
  - Drug hypersensitivity [Recovering/Resolving]
  - Drug reaction with eosinophilia and systemic symptoms [Recovering/Resolving]
